APPROVED DRUG PRODUCT: ZALEPLON
Active Ingredient: ZALEPLON
Strength: 5MG
Dosage Form/Route: CAPSULE;ORAL
Application: A077239 | Product #001
Applicant: TEVA PHARMACEUTICALS USA
Approved: Jun 6, 2008 | RLD: No | RS: No | Type: DISCN